FAERS Safety Report 16349536 (Version 1)
Quarter: 2019Q2

REPORT INFORMATION
  Report Type: Spontaneous
  Country: DE (occurrence: DE)
  Receive Date: 20190523
  Receipt Date: 20190523
  Transmission Date: 20190711
  Serious: Yes (Other)
  Sender: FDA-Public Use
  Company Number: DE-MYLANLABS-2019M1048163

PATIENT
  Age: 47 Year
  Sex: Male

DRUGS (1)
  1. LEPONEX [Suspect]
     Active Substance: CLOZAPINE
     Indication: PSYCHOTIC DISORDER
     Dosage: 400 MILLIGRAM, QD
     Route: 048
     Dates: start: 200308

REACTIONS (5)
  - Blood glucose increased [Unknown]
  - Catecholamines urine increased [Unknown]
  - Hypertension [Unknown]
  - Endocrine disorder [Not Recovered/Not Resolved]
  - Catecholamines urine [Unknown]

NARRATIVE: CASE EVENT DATE: 2003
